FAERS Safety Report 5921918-4 (Version None)
Quarter: 2008Q4

REPORT INFORMATION
  Report Type: 
  Country: None (occurrence: None)
  Receive Date: 20081017
  Receipt Date: 20081008
  Transmission Date: 20090506
  Serious: Yes (Hospitalization)
  Sender: FDA-Public Use
  Company Number: BE-AVENTIS-200815475EU

PATIENT
  Age: 65 Year
  Sex: Male
  Weight: 72 kg

DRUGS (7)
  1. CLEXANE [Suspect]
     Dosage: DOSE: UNK
     Route: 040
     Dates: start: 20080702, end: 20080702
  2. PLAVIX [Concomitant]
  3. BISOPROLOL 5 [Concomitant]
  4. ASAFLOW [Concomitant]
  5. OMIC [Concomitant]
  6. SIMVASTATINE NOS [Concomitant]
  7. LYSOMUCIL [Concomitant]

REACTIONS (2)
  - CATHETER THROMBOSIS [None]
  - MYOCARDIAL INFARCTION [None]
